FAERS Safety Report 6486560-8 (Version None)
Quarter: 2009Q4

REPORT INFORMATION
  Report Type: 
  Country: None (occurrence: None)
  Receive Date: 20091210
  Receipt Date: 20091203
  Transmission Date: 20100525
  Serious: Yes (Hospitalization, Other)
  Sender: FDA-Public Use
  Company Number: RU-BAYER-200941757GPV

PATIENT
  Age: 42 Year
  Sex: Female

DRUGS (2)
  1. BETAFERON [Suspect]
     Indication: MULTIPLE SCLEROSIS
     Route: 058
     Dates: start: 20020101, end: 20060101
  2. BETAFERON [Suspect]
     Route: 058
     Dates: start: 20080201, end: 20091201

REACTIONS (2)
  - CERVIX CARCINOMA [None]
  - CERVIX CARCINOMA RECURRENT [None]
